FAERS Safety Report 7124798-7 (Version None)
Quarter: 2010Q4

REPORT INFORMATION
  Report Type: 
  Country: None (occurrence: None)
  Receive Date: 20101129
  Receipt Date: 20101122
  Transmission Date: 20110411
  Serious: Yes (Death, Life-Threatening)
  Sender: FDA-Public Use
  Company Number: FR-ABBOTT-07P-056-0431041-00

PATIENT
  Sex: Male

DRUGS (3)
  1. MICROPAKINE [Suspect]
     Indication: CONVULSION
     Route: 048
  2. CODENFAN [Suspect]
     Indication: APHTHOUS STOMATITIS
     Dosage: 15MG AT 4 PM AND 15MG AT 8:15PM
     Route: 048
     Dates: start: 20071016, end: 20071016
  3. CODENFAN [Suspect]
     Route: 048
     Dates: start: 20071017

REACTIONS (1)
  - SUDDEN DEATH [None]
